FAERS Safety Report 24647761 (Version 6)
Quarter: 2025Q4

REPORT INFORMATION
  Report Type: Spontaneous
  Country: JP (occurrence: JP)
  Receive Date: 20241121
  Receipt Date: 20251031
  Transmission Date: 20260118
  Serious: Yes (Death)
  Sender: ABBVIE
  Company Number: JP-ABBVIE-6013890

PATIENT
  Age: 81 Year
  Sex: Male

DRUGS (12)
  1. VYALEV [Suspect]
     Active Substance: FOSCARBIDOPA\FOSLEVODOPA
     Indication: Parkinson^s disease
     Dosage: 4.4 ML/DAY
     Route: 058
     Dates: start: 20241111, end: 20241120
  2. HYDROCORTISONE BUTYRATE [Concomitant]
     Active Substance: HYDROCORTISONE BUTYRATE
     Indication: Dermatitis
     Dosage: FORM STRENGTH: 0.1 PERCENT
     Route: 062
     Dates: start: 20241117, end: 20241119
  3. Ramelteon jg [Concomitant]
     Indication: Insomnia
     Dosage: 8 MILLIGRAM
     Route: 048
     Dates: end: 20241119
  4. Heparinoid [Concomitant]
     Indication: Dry skin prophylaxis
     Dosage: FORM STRENGTH: 0.3 PERCENT
     Route: 062
     Dates: end: 20241119
  5. Zonisamide al [Concomitant]
     Indication: Parkinson^s disease
     Dosage: 25 MILLIGRAM
     Route: 048
     Dates: end: 20241119
  6. SENNOSIDES [Concomitant]
     Active Substance: SENNOSIDES
     Indication: Constipation
     Dosage: 36 MILLIGRAM
     Route: 048
     Dates: end: 20241119
  7. GLYCOSAMINOGLYCANS [Concomitant]
     Active Substance: GLYCOSAMINOGLYCANS
     Indication: Product used for unknown indication
     Dosage: FORM STRENGTH: 0.3 PERCENT
     Route: 062
     Dates: end: 20241119
  8. BILASTINE [Concomitant]
     Active Substance: BILASTINE
     Indication: Skin disorder
     Dosage: 20 MILLIGRAM
     Route: 048
     Dates: end: 20241119
  9. QUETIAPINE FUMARATE [Concomitant]
     Active Substance: QUETIAPINE FUMARATE
     Indication: Psychiatric symptom
     Dosage: 25 MILLIGRAM
     Route: 048
     Dates: end: 20241119
  10. CROTAMITON [Concomitant]
     Active Substance: CROTAMITON
     Indication: Dermatitis
     Route: 062
     Dates: start: 20241116, end: 20241119
  11. ROPINIROLE [Concomitant]
     Active Substance: ROPINIROLE
     Indication: Parkinson^s disease
     Dosage: 8 MILLIGRAM
     Route: 062
     Dates: end: 20241119
  12. Betamethasone valerate and Gentamicin sulfate [Concomitant]
     Indication: Dermatitis
     Dosage: FORM STRENGTH: 0.12 PERCENT
     Route: 062
     Dates: end: 20241119

REACTIONS (5)
  - Acute respiratory failure [Fatal]
  - Autonomic neuropathy [Not Recovered/Not Resolved]
  - Sleep apnoea syndrome [Not Recovered/Not Resolved]
  - Nervous system disorder [Unknown]
  - Parkinson^s disease [Unknown]

NARRATIVE: CASE EVENT DATE: 20241101
